FAERS Safety Report 14582502 (Version 1)
Quarter: 2018Q1

REPORT INFORMATION
  Report Type: Spontaneous
  Country: NO (occurrence: NO)
  Receive Date: 20180228
  Receipt Date: 20180228
  Transmission Date: 20180509
  Serious: Yes (Death, Life-Threatening)
  Sender: FDA-Public Use
  Company Number: NO-PURDUE PHARMA-GBR-2017-0051379

PATIENT
  Age: 20 Year
  Sex: Female

DRUGS (21)
  1. TRAMADOL HYDROCHLORIDE. [Suspect]
     Active Substance: TRAMADOL HYDROCHLORIDE
     Indication: DEPRESSION
     Dosage: UNK
     Route: 065
  2. NOZINAN                            /00038601/ [Suspect]
     Active Substance: LEVOMEPROMAZINE
     Indication: DEPRESSION
     Dosage: UNK
     Route: 065
  3. SAROTEX [Suspect]
     Active Substance: AMITRIPTYLINE HYDROCHLORIDE
     Indication: DEPRESSION
     Dosage: UNK
     Route: 065
  4. VIVAL [Suspect]
     Active Substance: DIAZEPAM
     Indication: DEPRESSION
     Dosage: UNK
     Route: 065
  5. IMOVANE [Suspect]
     Active Substance: ZOPICLONE
     Indication: DEPRESSION
     Dosage: UNK
     Route: 048
  6. ORFIRIL [Suspect]
     Active Substance: VALPROATE SODIUM
     Indication: DEPRESSION
     Dosage: 1200 MG, UNK
     Route: 065
  7. ATARAX [Suspect]
     Active Substance: HYDROXYZINE HYDROCHLORIDE
     Indication: DEPRESSION
     Dosage: UNK
     Route: 065
  8. CIPRAMIL                           /00582602/ [Suspect]
     Active Substance: CITALOPRAM HYDROBROMIDE
     Indication: PRODUCT USED FOR UNKNOWN INDICATION
     Dosage: UNK
     Route: 065
  9. CYANOCOBALAMIN. [Concomitant]
     Active Substance: CYANOCOBALAMIN
  10. CIPRALEX [Suspect]
     Active Substance: ESCITALOPRAM OXALATE
     Indication: DEPRESSION
     Dosage: UNK
     Route: 065
  11. TRUXAL                             /00012101/ [Suspect]
     Active Substance: CHLORPROTHIXENE
     Indication: PRODUCT USED FOR UNKNOWN INDICATION
     Dosage: UNK
     Route: 065
  12. NOBLIGAN [Suspect]
     Active Substance: TRAMADOL HYDROCHLORIDE
     Indication: DEPRESSION
     Dosage: 200 MG, UNK
     Route: 065
  13. PINEX FORTE [Suspect]
     Active Substance: ACETAMINOPHEN\CODEINE PHOSPHATE
     Indication: DEPRESSION
     Dosage: UNK
     Route: 065
  14. CATAPRESAN                         /00171101/ [Suspect]
     Active Substance: CLONIDINE
     Indication: DEPRESSION
     Dosage: 50 MG, UNK
     Route: 065
  15. SEROQUEL [Suspect]
     Active Substance: QUETIAPINE FUMARATE
     Indication: DEPRESSION
     Dosage: UNK
     Route: 065
  16. SOBRIL [Suspect]
     Active Substance: OXAZEPAM
     Indication: PRODUCT USED FOR UNKNOWN INDICATION
     Dosage: UNK
     Route: 065
  17. OXYNORM [Suspect]
     Active Substance: OXYCODONE HYDROCHLORIDE
     Indication: DEPRESSION
     Dosage: 10 MG, UNK
     Route: 065
  18. RIVOTRIL [Suspect]
     Active Substance: CLONAZEPAM
     Indication: DEPRESSION
     Dosage: UNK
     Route: 065
  19. REMERON [Suspect]
     Active Substance: MIRTAZAPINE
     Indication: DEPRESSION
     Dosage: UNK
     Route: 065
  20. LAMICTAL [Suspect]
     Active Substance: LAMOTRIGINE
     Indication: DEPRESSION
     Dosage: 100 MG, UNK
     Route: 065
  21. DIAMORPHINE                        /00197602/ [Concomitant]
     Active Substance: DIACETYLMORPHINE HYDROCHLORIDE

REACTIONS (2)
  - Completed suicide [Fatal]
  - Intentional self-injury [Fatal]

NARRATIVE: CASE EVENT DATE: 20121105
